FAERS Safety Report 22179658 (Version 5)
Quarter: 2024Q1

REPORT INFORMATION
  Report Type: Report from Study
  Country: EG (occurrence: EG)
  Receive Date: 20230406
  Receipt Date: 20240221
  Transmission Date: 20240410
  Serious: Yes (Other)
  Sender: FDA-Public Use
  Company Number: EG-002147023-NVSC2023EG058705

PATIENT
  Sex: Male

DRUGS (9)
  1. COSENTYX [Suspect]
     Active Substance: SECUKINUMAB
     Indication: Psoriatic arthropathy
     Dosage: 1 DOSAGE FORM, Q2W FOR 3 DOSES AS LOADING DOSE
     Route: 065
     Dates: start: 2021
  2. COSENTYX [Suspect]
     Active Substance: SECUKINUMAB
     Indication: Skin lesion
     Dosage: 1 DOSAGE FORM, QMO, AS MAINTENANCE DOSE
     Route: 065
     Dates: end: 202201
  3. COSENTYX [Suspect]
     Active Substance: SECUKINUMAB
     Dosage: 1 DOSAGE FORM, QW FOR 3 WEEKS AS LOADING DOSE
     Route: 065
  4. COSENTYX [Suspect]
     Active Substance: SECUKINUMAB
     Dosage: 1 DOSAGE FORM, QMO AS A MAINTENANCE DOSE)
     Route: 065
  5. COSENTYX [Suspect]
     Active Substance: SECUKINUMAB
     Dosage: 2 DOSAGE FORM, QMO (2 PREFILLED PENS AS TO BE TAKEN AT ONCE TOGETHER AS A MAINTENANCE DOSE)
     Route: 065
  6. COSENTYX [Suspect]
     Active Substance: SECUKINUMAB
     Dosage: UNK (LAST DOSE)
     Route: 065
     Dates: start: 20231215
  7. COLCHICINE [Concomitant]
     Active Substance: COLCHICINE
     Indication: Familial mediterranean fever
     Dosage: 1 DOSAGE FORM, QD
     Route: 065
  8. BISOPROLOL FUMARATE [Concomitant]
     Active Substance: BISOPROLOL FUMARATE
     Indication: Hypertension
     Dosage: 1.5 DOSAGE FORM, QD
     Route: 065
     Dates: start: 202201
  9. NORVASC [Concomitant]
     Active Substance: AMLODIPINE BESYLATE
     Indication: Hypertension
     Dosage: UNK
     Route: 065
     Dates: end: 20230228

REACTIONS (4)
  - Cardiac disorder [Recovering/Resolving]
  - Psoriatic arthropathy [Not Recovered/Not Resolved]
  - Off label use [Unknown]
  - Product use in unapproved indication [Unknown]

NARRATIVE: CASE EVENT DATE: 20210101
